FAERS Safety Report 4356144-6 (Version None)
Quarter: 2004Q2

REPORT INFORMATION
  Report Type: 
  Country: None (occurrence: None)
  Receive Date: 20040511
  Receipt Date: 20040209
  Transmission Date: 20050107
  Serious: Yes (Hospitalization, Other)
  Sender: FDA-Public Use
  Company Number: IE-BRISTOL-MYERS SQUIBB COMPANY-12502175

PATIENT
  Age: 4 Year
  Sex: Female
  Weight: 26 kg

DRUGS (6)
  1. PARAPLATIN [Suspect]
     Indication: OPTIC NERVE GLIOMA
     Route: 042
     Dates: start: 20031009, end: 20031009
  2. VINCRISTINE [Concomitant]
     Indication: OPTIC NERVE GLIOMA
     Dosage: 1.4/1.5 MG
     Route: 042
  3. ZOFRAN [Concomitant]
     Indication: PREMEDICATION
     Route: 042
  4. ZOFRAN [Concomitant]
     Indication: PROPHYLAXIS OF NAUSEA AND VOMITING
     Dosage: ORAL AND IV GIVEN PRIOR TO CHEMO AND FOR A FEW DAYS POST CHEMO
     Route: 048
  5. MAXOLON [Concomitant]
     Indication: PROPHYLAXIS OF NAUSEA AND VOMITING
     Dosage: PRE AND POST CHEMO
     Route: 048
  6. DEXAMETHASONE [Concomitant]
     Indication: PROPHYLAXIS OF NAUSEA AND VOMITING
     Dosage: PRE AND POST CHEMO
     Route: 048

REACTIONS (9)
  - CAFE AU LAIT SPOTS [None]
  - COUGH [None]
  - ERYTHEMA [None]
  - EYELID OEDEMA [None]
  - NAUSEA [None]
  - PRURITUS [None]
  - PYREXIA [None]
  - RASH [None]
  - URTICARIA [None]
